FAERS Safety Report 13548842 (Version 1)
Quarter: 2017Q2

REPORT INFORMATION
  Report Type: Spontaneous
  Country: US (occurrence: US)
  Receive Date: 20170516
  Receipt Date: 20170516
  Transmission Date: 20170830
  Serious: Yes (Other)
  Sender: FDA-Public Use
  Company Number: US-BION-005908

PATIENT
  Sex: Female

DRUGS (2)
  1. TOP CARE BRAND IBUPROFEN 200 MG SOFTGEL BAN 80CT [Suspect]
     Active Substance: IBUPROFEN
     Indication: TOOTHACHE
     Dosage: TOOK ONCE
     Route: 048
     Dates: start: 20160107
  2. AMOXICILLIN. [Suspect]
     Active Substance: AMOXICILLIN
     Indication: DENTAL OPERATION

REACTIONS (7)
  - Tinnitus [Recovered/Resolved]
  - Rash [Recovered/Resolved]
  - Paraesthesia oral [Recovered/Resolved]
  - Pain [Recovered/Resolved]
  - Product substitution issue [Unknown]
  - Hypersensitivity [Recovered/Resolved]
  - Dizziness [Recovered/Resolved]

NARRATIVE: CASE EVENT DATE: 20170108
